FAERS Safety Report 4546283-9 (Version None)
Quarter: 2005Q1

REPORT INFORMATION
  Report Type: 
  Country: None (occurrence: None)
  Receive Date: 20050106
  Receipt Date: 20050104
  Transmission Date: 20050727
  Serious: Yes (Hospitalization)
  Sender: FDA-Public Use
  Company Number: US-GLAXOSMITHKLINE-A0539201A

PATIENT
  Age: 83 Year
  Sex: Female

DRUGS (2)
  1. ECOTRIN ADULT LOW STRENGTH TABLETS [Suspect]
     Indication: PROPHYLAXIS
     Route: 048
     Dates: start: 20010101, end: 20040801
  2. TYLENOL [Concomitant]
     Indication: ARTHRITIS

REACTIONS (5)
  - ATRIAL FIBRILLATION [None]
  - CARDIAC DISORDER [None]
  - CONSTIPATION [None]
  - LOSS OF CONSCIOUSNESS [None]
  - PULMONARY OEDEMA [None]
